FAERS Safety Report 5625260-0 (Version None)
Quarter: 2008Q1

REPORT INFORMATION
  Report Type: 
  Country: None (occurrence: None)
  Receive Date: 20080208
  Receipt Date: 20080107
  Transmission Date: 20080703
  Serious: Yes (Other)
  Sender: FDA-Public Use
  Company Number: STI-2008-00325

PATIENT
  Age: 9 Month
  Sex: Female

DRUGS (1)
  1. CLOBETASOL PROPIONATE [Suspect]
     Indication: DERMATITIS DIAPER
     Dosage: (4 TO 5 TIMES DAILY)

REACTIONS (5)
  - ASPARTATE AMINOTRANSFERASE INCREASED [None]
  - CUSHING'S SYNDROME [None]
  - DRUG ADMINISTRATION ERROR [None]
  - ESCHERICHIA URINARY TRACT INFECTION [None]
  - PLATELET COUNT INCREASED [None]
